FAERS Safety Report 20902677 (Version 7)
Quarter: 2022Q3

REPORT INFORMATION
  Report Type: Report from Study
  Country: US (occurrence: US)
  Receive Date: 20220601
  Receipt Date: 20220909
  Transmission Date: 20221026
  Serious: No
  Sender: FDA-Public Use
  Company Number: US-NOVARTISTESTPH-NVSC2022US126136

PATIENT
  Sex: Male

DRUGS (2)
  1. TASIGNA [Suspect]
     Active Substance: NILOTINIB
     Indication: Product used for unknown indication
     Dosage: UNK
     Route: 048
     Dates: start: 20220316
  2. TASIGNA [Suspect]
     Active Substance: NILOTINIB
     Dosage: UNK
     Route: 048
     Dates: start: 20220516

REACTIONS (7)
  - Neuralgia [Recovered/Resolved]
  - Hypersomnia [Unknown]
  - Diarrhoea [Unknown]
  - Fatigue [Unknown]
  - Labelled drug-food interaction medication error [Unknown]
  - Product dose omission issue [Unknown]
  - Product supply issue [Unknown]
